FAERS Safety Report 15671078 (Version 1)
Quarter: 2018Q4

REPORT INFORMATION
  Report Type: Spontaneous
  Country: US (occurrence: US)
  Receive Date: 20181129
  Receipt Date: 20181129
  Transmission Date: 20190205
  Serious: Yes (Other)
  Sender: FDA-Public Use
  Company Number: US-SAKK-2018SA323753AA

PATIENT
  Age: 70 Year
  Sex: Female
  Weight: 74.3 kg

DRUGS (24)
  1. FABRAZYME [Suspect]
     Active Substance: AGALSIDASE BETA
     Indication: FABRY^S DISEASE
     Dosage: 75 MG, QOW
     Route: 041
     Dates: start: 20040630
  2. ACETAMINOPHEN;DIPHENHYDRAMINE HYDROCHLORIDE [Concomitant]
     Indication: ANAPHYLACTIC REACTION
     Dosage: 50 MG
     Route: 042
     Dates: start: 20181004
  3. GABAPENTIN. [Concomitant]
     Active Substance: GABAPENTIN
     Dosage: 300 MG; 3 TIMES A DAY
     Route: 065
     Dates: start: 20180829
  4. DILAUDID [Concomitant]
     Active Substance: HYDROMORPHONE HYDROCHLORIDE
     Dosage: 4 MG, EVERY 4-6 HOURS
     Route: 048
     Dates: start: 20180813
  5. METOPROLOL SUCCINATE. [Concomitant]
     Active Substance: METOPROLOL SUCCINATE
     Dosage: 25 MG, BID
     Route: 048
     Dates: start: 20171005
  6. PROTONIX [OMEPRAZOLE] [Concomitant]
     Dosage: 40 MG, QD
     Route: 048
     Dates: start: 20170927
  7. NORVASC [Concomitant]
     Active Substance: AMLODIPINE BESYLATE
     Dosage: 5 MG, QD
     Route: 048
     Dates: start: 20170927
  8. AMIODARONE [Concomitant]
     Active Substance: AMIODARONE
     Dosage: 200 MG, QD
     Route: 048
     Dates: start: 20170927
  9. ESTRADIOL. [Concomitant]
     Active Substance: ESTRADIOL
     Dosage: 1 DOSE, QD
     Route: 048
     Dates: start: 20170927
  10. EPINEPHRINE. [Concomitant]
     Active Substance: EPINEPHRINE
     Indication: ANAPHYLACTIC REACTION
     Dosage: 0.3 MG, UNK
     Route: 030
     Dates: start: 20181004
  11. VITAMIN B12 [Concomitant]
     Active Substance: CYANOCOBALAMIN
     Dosage: 1000 MG, QD
     Route: 048
     Dates: start: 20171005
  12. INDAPAMIDE. [Concomitant]
     Active Substance: INDAPAMIDE
     Dosage: 1.25 MG, QD
     Route: 048
     Dates: start: 20170927
  13. STERILE WATER [Concomitant]
     Active Substance: WATER
     Indication: ANAPHYLACTIC REACTION
     Dosage: 12 ML, UNK
     Route: 042
     Dates: start: 20181004
  14. SHINGRIX [Concomitant]
     Active Substance: RECOMBINANT VARICELLA ZOSTER VIRUS (VZV) GLYCOPROTEIN E
     Dosage: 1 UNIT EVERY 6 MONTHS
     Route: 030
     Dates: start: 20180717
  15. PRENATAL [ASCORBIC ACID;FERROUS FUMARATE;FOLIC ACID;RETINOL] [Concomitant]
     Dosage: 1 DOSE, QD
     Route: 048
     Dates: start: 20171005
  16. LISINOPRIL. [Concomitant]
     Active Substance: LISINOPRIL
     Dosage: 10 MG, QD
     Route: 048
     Dates: start: 20170927
  17. SOLU-MEDROL [Concomitant]
     Active Substance: METHYLPREDNISOLONE SODIUM SUCCINATE
     Dosage: 125 MG, UNK
     Route: 042
     Dates: start: 20181004
  18. SYSTANE (HYPROMELLOSE 2910 (4000 MPA.S)) [Concomitant]
     Active Substance: HYPROMELLOSE 2910 (4000 MPA.S)
     Dosage: 1 DROP 4 TIMES A DAY
     Route: 065
     Dates: start: 20180712
  19. XARELTO [Concomitant]
     Active Substance: RIVAROXABAN
     Dosage: 15 MG, QD
     Route: 048
     Dates: start: 20170927
  20. IRON [Concomitant]
     Active Substance: IRON
     Dosage: 10 MG, QD
     Route: 048
     Dates: start: 20170927
  21. ACETAMINOPHEN;DIPHENHYDRAMINE HYDROCHLORIDE [Concomitant]
     Indication: PREMEDICATION
     Dosage: 500 MG
     Route: 048
     Dates: start: 20181004
  22. NORMAL SALINE [Concomitant]
     Active Substance: SODIUM CHLORIDE
     Indication: FLUSHING
     Dosage: 0.9 %, UNK
     Route: 042
     Dates: start: 20181004
  23. ASPIRIN [ACETYLSALICYLIC ACID] [Concomitant]
     Active Substance: ASPIRIN
     Dosage: 81 MG, UNK
     Route: 048
     Dates: start: 20180726
  24. ISOSORBIDE MONONITRATE. [Concomitant]
     Active Substance: ISOSORBIDE MONONITRATE
     Dosage: 60 MG, QD
     Route: 048
     Dates: start: 20171005

REACTIONS (1)
  - Cystitis [Unknown]
